FAERS Safety Report 12177864 (Version 1)
Quarter: 2016Q1

REPORT INFORMATION
  Report Type: Spontaneous
  Country: SE (occurrence: SE)
  Receive Date: 20160315
  Receipt Date: 20160315
  Transmission Date: 20160526
  Serious: Yes (Death)
  Sender: FDA-Public Use
  Company Number: SE-CIPLA LTD.-2016SE02330

PATIENT

DRUGS (6)
  1. MORPHINE [Suspect]
     Active Substance: MORPHINE
     Dosage: UNK
     Route: 065
  2. CODEINE [Suspect]
     Active Substance: CODEINE
     Dosage: UNK
     Route: 065
  3. NITRAZEPAM [Suspect]
     Active Substance: NITRAZEPAM
     Dosage: UNK
     Route: 065
  4. SALICYLIC ACID. [Suspect]
     Active Substance: SALICYLIC ACID
     Dosage: UNK
     Route: 065
  5. CITALOPRAM [Suspect]
     Active Substance: CITALOPRAM HYDROBROMIDE
     Dosage: UNK
     Route: 065
  6. PROMETHAZINE [Suspect]
     Active Substance: PROMETHAZINE\PROMETHAZINE HYDROCHLORIDE
     Dosage: UNK
     Route: 065

REACTIONS (2)
  - Poisoning [Fatal]
  - Accident [Fatal]
